FAERS Safety Report 20396631 (Version 2)
Quarter: 2022Q1

REPORT INFORMATION
  Report Type: Spontaneous
  Country: US (occurrence: US)
  Receive Date: 20220130
  Receipt Date: 20220201
  Transmission Date: 20220423
  Serious: No
  Sender: FDA-Public Use
  Company Number: US-ABBVIE-21K-163-3829142-00

PATIENT
  Age: 43 Year
  Sex: Female

DRUGS (13)
  1. HUMIRA [Suspect]
     Active Substance: ADALIMUMAB
     Indication: Psoriatic arthropathy
     Route: 058
  2. LEFLUNOMIDE [Concomitant]
     Active Substance: LEFLUNOMIDE
     Indication: Psoriatic arthropathy
  3. LISINOPRIL [Concomitant]
     Active Substance: LISINOPRIL
     Indication: Chronic kidney disease
  4. LISINOPRIL [Concomitant]
     Active Substance: LISINOPRIL
     Indication: Renal hypertension
  5. METOPROLOL [Concomitant]
     Active Substance: METOPROLOL
     Indication: Hypertension
  6. METOPROLOL [Concomitant]
     Active Substance: METOPROLOL
     Indication: Heart rate increased
  7. CRESTOR [Concomitant]
     Active Substance: ROSUVASTATIN CALCIUM
     Indication: Blood cholesterol increased
  8. VALTREX [Concomitant]
     Active Substance: VALACYCLOVIR HYDROCHLORIDE
     Indication: Herpes simplex
  9. MAXALT [Concomitant]
     Active Substance: RIZATRIPTAN BENZOATE
     Indication: Migraine
  10. ZOFRAN [Concomitant]
     Active Substance: ONDANSETRON HYDROCHLORIDE
     Indication: Migraine
  11. FAMOTIDINE [Concomitant]
     Active Substance: FAMOTIDINE
     Indication: Gastrooesophageal reflux disease
  12. PREDNISONE [Concomitant]
     Active Substance: PREDNISONE
     Indication: Psoriatic arthropathy
  13. COVID-19 VACCINE [Concomitant]
     Indication: COVID-19 immunisation

REACTIONS (1)
  - Rash [Recovered/Resolved]

NARRATIVE: CASE EVENT DATE: 20210301
